FAERS Safety Report 9194606 (Version 1)
Quarter: 2013Q1

REPORT INFORMATION
  Report Type: Spontaneous
  Country: US (occurrence: US)
  Receive Date: 20130327
  Receipt Date: 20130327
  Transmission Date: 20140127
  Serious: No
  Sender: FDA-Public Use
  Company Number: US-ALLERGAN-1208154US

PATIENT
  Age: 62 Year
  Sex: Female

DRUGS (1)
  1. LATISSE 0.03% [Suspect]
     Indication: PRODUCT USED FOR UNKNOWN INDICATION
     Dosage: 1 GTT OU, QPM
     Route: 047

REACTIONS (5)
  - Lid sulcus deepened [Unknown]
  - Vision blurred [Unknown]
  - Blepharal pigmentation [Unknown]
  - Ocular hyperaemia [Unknown]
  - Skin hyperpigmentation [Unknown]
